FAERS Safety Report 12280380 (Version 1)
Quarter: 2016Q2

REPORT INFORMATION
  Report Type: Spontaneous
  Country: US (occurrence: US)
  Receive Date: 20160419
  Receipt Date: 20160419
  Transmission Date: 20160815
  Serious: Yes (Hospitalization)
  Sender: FDA-Public Use
  Company Number: US-PFIZER INC-2016075682

PATIENT
  Age: 83 Year
  Sex: Female

DRUGS (2)
  1. CELEBREX [Suspect]
     Active Substance: CELECOXIB
     Indication: INFLAMMATION
     Dosage: 200 MG, 1X/DAY
     Dates: end: 201601
  2. CELEBREX [Suspect]
     Active Substance: CELECOXIB
     Indication: PAIN

REACTIONS (1)
  - Wound [Unknown]
